FAERS Safety Report 5531132-2 (Version None)
Quarter: 2007Q4

REPORT INFORMATION
  Report Type: 
  Country: None (occurrence: None)
  Receive Date: 20071130
  Receipt Date: 20071120
  Transmission Date: 20080405
  Serious: Yes (Other)
  Sender: FDA-Public Use
  Company Number: GB-PFIZER INC-2007098668

PATIENT
  Age: 61 Year
  Weight: 122 kg

DRUGS (15)
  1. CHAMPIX [Suspect]
     Indication: SMOKING CESSATION THERAPY
     Route: 048
     Dates: start: 20070915, end: 20070919
  2. ADIZEM [Concomitant]
     Route: 048
  3. ACETYLSALICYLIC ACID SRT [Concomitant]
     Route: 048
  4. ATORVASTATIN CALCIUM [Concomitant]
     Route: 048
  5. BENDROFLUMETHIAZIDE [Concomitant]
     Route: 048
  6. CO-DYDRAMOL [Concomitant]
     Route: 048
  7. ENALAPRIL MALEATE [Concomitant]
     Route: 048
  8. GLYCERYL TRINITRATE [Concomitant]
     Indication: CHEST PAIN
     Route: 048
  9. ISOSORBIDE DINITRATE [Concomitant]
     Route: 048
  10. LACTULOSE [Concomitant]
     Route: 048
  11. LEVOTHYROXINE SODIUM [Concomitant]
     Route: 048
  12. ALBUTEROL [Concomitant]
     Route: 055
  13. SERETIDE [Concomitant]
     Route: 055
  14. TIOTROPIUM BROMIDE [Concomitant]
     Route: 055
  15. HYDROCHLOROTHIAZIDE [Concomitant]

REACTIONS (3)
  - COORDINATION ABNORMAL [None]
  - DISTURBANCE IN ATTENTION [None]
  - SOMNOLENCE [None]
